FAERS Safety Report 5380685-6 (Version None)
Quarter: 2007Q3

REPORT INFORMATION
  Report Type: 
  Country: None (occurrence: None)
  Receive Date: 20070706
  Receipt Date: 20070628
  Transmission Date: 20080115
  Serious: Yes (Other)
  Sender: FDA-Public Use
  Company Number: B0477939A

PATIENT
  Age: 47 Year
  Sex: Female

DRUGS (1)
  1. NICABATE CQ 2MG LOZENGE [Suspect]
     Dosage: 2MG TWELVE TIMES PER DAY
     Route: 002
     Dates: start: 20060901

REACTIONS (2)
  - DRUG DEPENDENCE [None]
  - INTENTIONAL DRUG MISUSE [None]
